FAERS Safety Report 23933998 (Version 2)
Quarter: 2024Q3

REPORT INFORMATION
  Report Type: Spontaneous
  Country: JP (occurrence: JP)
  Receive Date: 20240603
  Receipt Date: 20240921
  Transmission Date: 20241017
  Serious: Yes (Hospitalization)
  Sender: ROCHE
  Company Number: JP-CHUGAI-2024018405AA

PATIENT
  Age: 82 Year
  Sex: Female
  Weight: 36 kg

DRUGS (1)
  1. PHESGO [Suspect]
     Active Substance: HYALURONIDASE-ZZXF\PERTUZUMAB\TRASTUZUMAB
     Indication: Colorectal cancer
     Dosage: UNK
     Route: 058
     Dates: start: 20240502, end: 20240502

REACTIONS (4)
  - Decreased appetite [Recovered/Resolved]
  - Rash [Recovered/Resolved]
  - Thirst [Recovering/Resolving]
  - Conjunctivitis [Recovered/Resolved]

NARRATIVE: CASE EVENT DATE: 20240506
